FAERS Safety Report 4499461-1 (Version None)
Quarter: 2004Q4

REPORT INFORMATION
  Report Type: 
  Country: None (occurrence: None)
  Receive Date: 20040928
  Receipt Date: 20040706
  Transmission Date: 20050328
  Serious: No
  Sender: FDA-Public Use
  Company Number: 04P-163-0265803-00

PATIENT
  Age: 77 Year
  Sex: Female
  Weight: 77.1115 kg

DRUGS (11)
  1. HUMIRA [Suspect]
     Indication: RHEUMATOID ARTHRITIS
     Dosage: 40 MG, 1 IN 2 2K, SUBCUTANEOUS
     Route: 058
     Dates: start: 20040329
  2. COUMADIN [Concomitant]
  3. DIGOXIN [Concomitant]
  4. COMBIVENT [Concomitant]
  5. FLUTICASONE PROPIONATE [Concomitant]
  6. BOWEL RELAXER [Concomitant]
  7. MAXIDE (DEXAMETHASONE) [Concomitant]
  8. CALCIUM [Concomitant]
  9. IRON [Concomitant]
  10. MULTI-VITAMINS [Concomitant]
  11. OXYGEN [Concomitant]

REACTIONS (3)
  - INJECTION SITE HAEMORRHAGE [None]
  - INJECTION SITE PAIN [None]
  - INJECTION SITE STINGING [None]
